FAERS Safety Report 17261481 (Version 5)
Quarter: 2020Q3

REPORT INFORMATION
  Report Type: Report from Study
  Country: BR (occurrence: BR)
  Receive Date: 20200113
  Receipt Date: 20200518
  Transmission Date: 20201105
  Serious: Yes (Death, Hospitalization, Other)
  Sender: FDA-Public Use
  Company Number: BR-ROCHE-2486588

PATIENT
  Sex: Female

DRUGS (22)
  1. CYCLOPHOSPHAMIDE. [Suspect]
     Active Substance: CYCLOPHOSPHAMIDE
     Route: 065
     Dates: start: 201805, end: 201810
  2. DEXAMETHASONE. [Suspect]
     Active Substance: DEXAMETHASONE
     Dosage: R?HYPER?CVAD
     Route: 065
     Dates: start: 201803, end: 201804
  3. VINCRISTINE [Suspect]
     Active Substance: VINCRISTINE
     Indication: DIFFUSE LARGE B-CELL LYMPHOMA
     Dosage: R?CHOP
     Route: 065
     Dates: start: 201701, end: 201707
  4. CYTARABINE. [Suspect]
     Active Substance: CYTARABINE
     Indication: DIFFUSE LARGE B-CELL LYMPHOMA
     Dosage: R?DHAP
     Route: 065
     Dates: start: 201712, end: 201802
  5. VINCRISTINE [Suspect]
     Active Substance: VINCRISTINE
     Dosage: R?CHOP + BORTEZOMIB
     Route: 065
     Dates: start: 201805, end: 201810
  6. RITUXIMAB. [Suspect]
     Active Substance: RITUXIMAB
     Indication: DIFFUSE LARGE B-CELL LYMPHOMA
     Dosage: R?CHOP
     Route: 065
     Dates: start: 201701, end: 201707
  7. DOXORUBICIN [Suspect]
     Active Substance: DOXORUBICIN
     Dosage: R?CHOP + BORTEZOMIB
     Route: 065
     Dates: start: 201805, end: 201810
  8. RITUXIMAB. [Suspect]
     Active Substance: RITUXIMAB
     Dosage: R?HYPER?CVAD
     Route: 065
     Dates: start: 201803, end: 201804
  9. RITUXIMAB. [Suspect]
     Active Substance: RITUXIMAB
     Dosage: R?CHOP + BORTEZOMIB 6 CYCLES
     Route: 065
     Dates: start: 201805, end: 201810
  10. CYCLOPHOSPHAMIDE. [Suspect]
     Active Substance: CYCLOPHOSPHAMIDE
     Indication: DIFFUSE LARGE B-CELL LYMPHOMA
     Route: 065
     Dates: start: 201701, end: 201707
  11. DOXORUBICIN [Suspect]
     Active Substance: DOXORUBICIN
     Indication: DIFFUSE LARGE B-CELL LYMPHOMA
     Dosage: R?CHOP
     Route: 065
     Dates: start: 201701, end: 201707
  12. DEXAMETHASONE. [Suspect]
     Active Substance: DEXAMETHASONE
     Indication: DIFFUSE LARGE B-CELL LYMPHOMA
     Dosage: R?DHAP
     Route: 065
     Dates: start: 201712, end: 201802
  13. POLATUZUMAB VEDOTIN. [Suspect]
     Active Substance: POLATUZUMAB VEDOTIN
     Indication: DIFFUSE LARGE B-CELL LYMPHOMA
     Dosage: 110 (UNIT NOT REPORTED)
     Route: 042
     Dates: start: 20191204
  14. RITUXIMAB. [Suspect]
     Active Substance: RITUXIMAB
     Dosage: R?DHAP
     Route: 065
     Dates: start: 201712, end: 201802
  15. BORTEZOMIB. [Suspect]
     Active Substance: BORTEZOMIB
     Indication: DIFFUSE LARGE B-CELL LYMPHOMA
     Dosage: R?CHOP + BORTEZOMIB
     Route: 065
     Dates: start: 201805, end: 201810
  16. PREDNISONE. [Suspect]
     Active Substance: PREDNISONE
     Indication: DIFFUSE LARGE B-CELL LYMPHOMA
     Dosage: R?CHOP
     Route: 065
     Dates: start: 201701, end: 201707
  17. PREDNISONE. [Suspect]
     Active Substance: PREDNISONE
     Dosage: R?CHOP + BORTEZOMIB
     Route: 065
     Dates: start: 201805, end: 201810
  18. RITUXIMAB. [Suspect]
     Active Substance: RITUXIMAB
     Dosage: MAINTENANCE
     Route: 065
     Dates: start: 20190114, end: 20190214
  19. CYCLOPHOSPHAMIDE. [Suspect]
     Active Substance: CYCLOPHOSPHAMIDE
     Route: 065
     Dates: start: 201803, end: 201804
  20. VINCRISTINE [Suspect]
     Active Substance: VINCRISTINE
     Dosage: R?HYPER?CVAD
     Route: 065
     Dates: start: 201803, end: 201904
  21. CISPLATIN. [Suspect]
     Active Substance: CISPLATIN
     Indication: DIFFUSE LARGE B-CELL LYMPHOMA
     Dosage: R?DHAP
     Route: 065
     Dates: start: 201712, end: 201802
  22. DOXORUBICIN [Suspect]
     Active Substance: DOXORUBICIN
     Dosage: R?HYPER?CVAD
     Route: 065
     Dates: start: 201803, end: 201804

REACTIONS (5)
  - Neurotoxicity [Recovered/Resolved]
  - Infection [Unknown]
  - COVID-19 [Fatal]
  - Ill-defined disorder [Unknown]
  - Nervous system disorder [Unknown]
